FAERS Safety Report 9134982 (Version 1)
Quarter: 2013Q1

REPORT INFORMATION
  Report Type: Spontaneous
  Country: BR (occurrence: BR)
  Receive Date: 20130304
  Receipt Date: 20130304
  Transmission Date: 20140127
  Serious: Yes (Other)
  Sender: FDA-Public Use
  Company Number: BR-SHIRE-ALL1-2013-01152

PATIENT
  Age: 16 Year
  Sex: Female

DRUGS (1)
  1. VENVANSE [Suspect]
     Indication: PRODUCT USED FOR UNKNOWN INDICATION
     Dosage: 70 MG, UNKNOWN
     Route: 048

REACTIONS (7)
  - Drug withdrawal syndrome [Unknown]
  - Restlessness [Unknown]
  - Agitation [Unknown]
  - Irritability [Unknown]
  - Tachycardia [Unknown]
  - Anxiety [Unknown]
  - Off label use [Unknown]
